FAERS Safety Report 10458559 (Version 1)
Quarter: 2014Q3

REPORT INFORMATION
  Report Type: Other
  Country: JP (occurrence: JP)
  Receive Date: 20140917
  Receipt Date: 20140917
  Transmission Date: 20150326
  Serious: Yes (Hospitalization, Other)
  Sender: FDA-Public Use
  Company Number: JP-LUPIN PHARMACEUTICALS INC.-2014-01577

PATIENT
  Age: 74 Year
  Sex: Female
  Weight: 46.9 kg

DRUGS (5)
  1. VANCOMYCIN FOR IV INFUSION [Concomitant]
     Indication: INFECTION
     Route: 042
     Dates: start: 20140625, end: 20140630
  2. ALLELOCK TABLET [Concomitant]
     Indication: INFECTION
     Route: 042
     Dates: start: 20140624, end: 20140706
  3. TAKEPRON IV [Concomitant]
     Indication: INFECTION
     Route: 042
     Dates: start: 20140624, end: 20140706
  4. CEFACLOR. [Suspect]
     Active Substance: CEFACLOR
     Indication: URINARY TRACT INFECTION
     Route: 048
     Dates: start: 20140618, end: 20140620
  5. AMLODIPINE OD TABLET 5MG ^AMEL^ [Suspect]
     Active Substance: AMLODIPINE BESYLATE
     Indication: HYPERTENSION
     Route: 048
     Dates: end: 20140627

REACTIONS (3)
  - Hepatic cirrhosis [Not Recovered/Not Resolved]
  - Rash [Recovering/Resolving]
  - Liver disorder [Unknown]

NARRATIVE: CASE EVENT DATE: 20140620
